FAERS Safety Report 4973858-5 (Version None)
Quarter: 2006Q2

REPORT INFORMATION
  Report Type: 
  Country: None (occurrence: None)
  Receive Date: 20060415
  Receipt Date: 20060406
  Transmission Date: 20061013
  Serious: Yes (Other)
  Sender: FDA-Public Use
  Company Number: CA-ABBOTT-06P-028-0330395-00

PATIENT
  Sex: Female

DRUGS (1)
  1. BIAXIN [Suspect]
     Indication: PNEUMONIA
     Route: 048

REACTIONS (1)
  - ABORTION SPONTANEOUS [None]
